FAERS Safety Report 25239156 (Version 2)
Quarter: 2025Q3

REPORT INFORMATION
  Report Type: Report from Study
  Country: US (occurrence: US)
  Receive Date: 20250425
  Receipt Date: 20250703
  Transmission Date: 20251021
  Serious: Yes (Other)
  Sender: NOVARTIS
  Company Number: US-002147023-NVSC2025US066753

PATIENT
  Age: 62 Year
  Sex: Female

DRUGS (2)
  1. KISQALI [Suspect]
     Active Substance: RIBOCICLIB SUCCINATE
     Indication: Breast cancer
     Dosage: 400 MG - 200 MG EACH , EVERY 21 DAYS, QD
     Route: 048
     Dates: start: 20250316
  2. KISQALI [Suspect]
     Active Substance: RIBOCICLIB SUCCINATE
     Route: 048

REACTIONS (5)
  - Neuropathy peripheral [Unknown]
  - Pain in extremity [Unknown]
  - Fatigue [Unknown]
  - Diarrhoea [Recovering/Resolving]
  - Skin discolouration [Unknown]

NARRATIVE: CASE EVENT DATE: 20250301
